FAERS Safety Report 7622223-0 (Version None)
Quarter: 2011Q3

REPORT INFORMATION
  Report Type: 
  Country: None (occurrence: None)
  Receive Date: 20110720
  Receipt Date: 20110606
  Transmission Date: 20111222
  Serious: Yes (Other)
  Sender: FDA-Public Use
  Company Number: US-BAYER-2011-036594

PATIENT
  Age: 24 Year
  Sex: Female
  Weight: 81.633 kg

DRUGS (3)
  1. IMPLANON [Concomitant]
     Dosage: UNK
     Dates: start: 20091118
  2. DROSPIRENONE AND ETHINYL ESTRADIOL [Suspect]
     Indication: CONTRACEPTION
     Dosage: UNK
     Dates: start: 20080501, end: 20091001
  3. YAZ [Suspect]
     Indication: CONTRACEPTION
     Dosage: UNK
     Dates: start: 20080501, end: 20091001

REACTIONS (5)
  - EMOTIONAL DISTRESS [None]
  - GALLBLADDER DISORDER [None]
  - BILIARY DYSKINESIA [None]
  - INJURY [None]
  - PAIN [None]
